FAERS Safety Report 10210988 (Version 3)
Quarter: 2014Q3

REPORT INFORMATION
  Report Type: Spontaneous
  Country: US (occurrence: None)
  Receive Date: 20140528
  Receipt Date: 20140804
  Transmission Date: 20150326
  Serious: Yes (Other)
  Sender: FDA-Public Use
  Company Number: UTC-048380

PATIENT
  Age: 66 Year
  Sex: Female

DRUGS (2)
  1. TYVASO [Suspect]
     Active Substance: TREPROSTINIL
     Indication: PULMONARY ARTERIAL HYPERTENSION
     Route: 055
     Dates: start: 20130701
  2. REVATIO (SILDENAFIL CITRATE) UNKNOWN [Concomitant]

REACTIONS (2)
  - Transfusion [None]
  - Epistaxis [None]

NARRATIVE: CASE EVENT DATE: 20140419
